FAERS Safety Report 9328679 (Version 1)
Quarter: 2013Q2

REPORT INFORMATION
  Report Type: Spontaneous
  Country: US (occurrence: US)
  Receive Date: 20130604
  Receipt Date: 20130604
  Transmission Date: 20140414
  Serious: No
  Sender: FDA-Public Use
  Company Number: US-SANOFI-AVENTIS-2012SA027965

PATIENT
  Age: 75 Year
  Sex: Female

DRUGS (3)
  1. LANTUS [Suspect]
     Indication: TYPE 1 DIABETES MELLITUS
     Dosage: LANTUS VIALS
     Route: 058
  2. LANTUS [Suspect]
     Indication: TYPE 1 DIABETES MELLITUS
     Dosage: LANTUS SOLOSTAR.?DOSE: 22-28 UNITS VIA SLIDING SCALE.
     Route: 058
     Dates: start: 20120420
  3. SOLOSTAR [Suspect]
     Indication: TYPE 1 DIABETES MELLITUS

REACTIONS (3)
  - Feeling abnormal [Unknown]
  - Product quality issue [Unknown]
  - Blood glucose decreased [Unknown]
